FAERS Safety Report 8852073 (Version 1)
Quarter: 2012Q4

REPORT INFORMATION
  Report Type: 
  Country: US (occurrence: US)
  Receive Date: 20121022
  Receipt Date: 20121022
  Transmission Date: 20130627
  Serious: Yes (Hospitalization, Other)
  Sender: FDA-Public Use
  Company Number: US-BAYER-2012-107498

PATIENT
  Age: 48 Year
  Sex: Female

DRUGS (5)
  1. YASMIN [Suspect]
     Indication: MENSTRUATION IRREGULAR
  2. PRILOSEC [Concomitant]
  3. TOPAMAX [Concomitant]
  4. VIACTIV [CALCIUM] [Concomitant]
  5. CENTRUM [Concomitant]

REACTIONS (3)
  - Pulmonary embolism [Recovered/Resolved]
  - Deep vein thrombosis [Recovered/Resolved]
  - Cholelithiasis [None]
